FAERS Safety Report 6105685-X (Version None)
Quarter: 2009Q1

REPORT INFORMATION
  Report Type: 
  Country: None (occurrence: None)
  Receive Date: 20090306
  Receipt Date: 20090223
  Transmission Date: 20090719
  Serious: Yes (Death)
  Sender: FDA-Public Use
  Company Number: US-PFIZER INC-2009173690

PATIENT
  Sex: Female

DRUGS (4)
  1. XANAX [Suspect]
  2. OXYCONTIN [Suspect]
  3. CODEINE [Suspect]
  4. ANTIDEPRESSANTS [Suspect]

REACTIONS (2)
  - COMPLETED SUICIDE [None]
  - OVERDOSE [None]
